FAERS Safety Report 25230886 (Version 1)
Quarter: 2025Q2

REPORT INFORMATION
  Report Type: Spontaneous
  Country: US (occurrence: None)
  Receive Date: 20250423
  Receipt Date: 20250423
  Transmission Date: 20250717
  Serious: Yes (Other)
  Sender: FDA-CTU
  Company Number: None

PATIENT
  Age: 48 Year
  Sex: Male

DRUGS (2)
  1. ENTECAVIR [Suspect]
     Active Substance: ENTECAVIR
     Indication: Hepatitis viral
     Dosage: 1MG QD?
  2. ENTECAVIR [Suspect]
     Active Substance: ENTECAVIR
     Indication: Hepatitis B

REACTIONS (2)
  - Gout [None]
  - Therapy interrupted [None]
